FAERS Safety Report 8430867-1 (Version None)
Quarter: 2012Q2

REPORT INFORMATION
  Report Type: 
  Country: None (occurrence: None)
  Receive Date: 20120323
  Receipt Date: 20110826
  Transmission Date: 20120825
  Serious: Yes (Disabling)
  Sender: FDA-Public Use
  Company Number: 163-21880-11083396

PATIENT
  Age: 65 Year
  Sex: Female

DRUGS (18)
  1. OCUVITE (OCUVITE) (UNKNOWN) [Concomitant]
  2. MULTIVITAMINS (MULTIVITAMINS) (UNKNOWN) [Concomitant]
  3. METOPROLOL TARTRATE [Concomitant]
  4. ALLOPURINOL [Concomitant]
  5. SINGULAIR (MONTELUKAST) (UNKNOWN) [Concomitant]
  6. ASPIRIN [Concomitant]
  7. OXYCONTIN [Concomitant]
  8. OXYCODONE (OXYCODONE) (UNKNOWN) [Concomitant]
  9. METFORMIN HCL [Concomitant]
  10. NITROGLYCERINE (GLYCERYL TRINITRATE) (UNKNOWN) [Concomitant]
  11. REVLIMID [Suspect]
     Indication: MULTIPLE MYELOMA
     Dosage: 15 MG, DAILY X 14 DAYS PO
     Route: 048
     Dates: start: 20010823
  12. OMEPRAZOLE [Concomitant]
  13. BONINE (MECLOZINE HYDROCHLORIDE) (UNKNOWN) [Concomitant]
  14. FUROSEMIDE [Concomitant]
  15. BYSTOLIC (NEBIVOLOL HYDROCHLORIDE) (UNKNOWN) [Concomitant]
  16. BENAZEPRIL HYDROCHLORIDE [Concomitant]
  17. SIMVASTATIN [Concomitant]
  18. CALTRATE (CALCIUM CARBONATE) (UNKNOWN) [Concomitant]

REACTIONS (2)
  - ABDOMINAL PAIN [None]
  - NAUSEA [None]
